FAERS Safety Report 20778710 (Version 1)
Quarter: 2022Q2

REPORT INFORMATION
  Report Type: Spontaneous
  Country: CA (occurrence: CA)
  Receive Date: 20220503
  Receipt Date: 20220503
  Transmission Date: 20220721
  Serious: Yes (Hospitalization, Congenital Anomaly, Other)
  Sender: FDA-Public Use
  Company Number: CA-TAKEDA-2019TUS063671

PATIENT
  Age: 69 Year
  Sex: Male
  Weight: 66 kg

DRUGS (13)
  1. ALVESCO [Suspect]
     Active Substance: CICLESONIDE
     Indication: Product used for unknown indication
     Route: 055
  2. OMNARIS [Suspect]
     Active Substance: CICLESONIDE
     Indication: Product used for unknown indication
     Dosage: 50.0UG UNKNOWN
     Route: 045
  3. PANTOPRAZOLE SODIUM [Suspect]
     Active Substance: PANTOPRAZOLE SODIUM
     Indication: Product used for unknown indication
     Dosage: 40.0MG UNKNOWN
     Route: 065
  4. IVERMECTIN [Suspect]
     Active Substance: IVERMECTIN
     Indication: Product used for unknown indication
     Dosage: UNK
     Route: 065
  5. PLAQUENIL [Suspect]
     Active Substance: HYDROXYCHLOROQUINE SULFATE
     Indication: Product used for unknown indication
     Dosage: UNK
     Route: 065
  6. PREDNISONE [Suspect]
     Active Substance: PREDNISONE
     Indication: Asthma
     Dosage: 5.0MG UNKNOWN
     Route: 048
     Dates: start: 20090101
  7. PREDNISONE [Suspect]
     Active Substance: PREDNISONE
     Indication: Asthma
     Dosage: 50.0MG UNKNOWN
     Route: 048
  8. ALBUTEROL SULFATE [Suspect]
     Active Substance: ALBUTEROL SULFATE
     Indication: Product used for unknown indication
     Dosage: 100.0UG UNKNOWN
     Route: 065
     Dates: start: 20090101
  9. UMECLIDINIUM BROMIDE [Suspect]
     Active Substance: UMECLIDINIUM BROMIDE
     Indication: Product used for unknown indication
     Dosage: 62.5 QD
     Route: 065
  10. ZENHALE [Suspect]
     Active Substance: FORMOTEROL FUMARATE\MOMETASONE FUROATE
     Indication: Product used for unknown indication
     Dosage: 200 MICOGRAM
     Route: 065
     Dates: start: 20140101
  11. NUCALA [Suspect]
     Active Substance: MEPOLIZUMAB
     Indication: Asthma
     Route: 042
     Dates: start: 20190527
  12. SULFASALAZINE [Concomitant]
     Active Substance: SULFASALAZINE
     Indication: Arthritis
     Dosage: UNK
     Route: 065
  13. ARAVA [Concomitant]
     Active Substance: LEFLUNOMIDE
     Indication: Arthritis
     Dosage: UNK
     Route: 065

REACTIONS (34)
  - Atelectasis [Unknown]
  - Blood disorder [Unknown]
  - Blood immunoglobulin E increased [Unknown]
  - Bronchial wall thickening [Unknown]
  - Bronchiolitis [Unknown]
  - Condition aggravated [Unknown]
  - Dyspnoea [Recovered/Resolved]
  - Eosinophil count increased [Unknown]
  - Eosinophilic granulomatosis with polyangiitis [Unknown]
  - Fungal infection [Unknown]
  - Infection parasitic [Unknown]
  - Pneumonitis [Unknown]
  - Malaise [Unknown]
  - Pneumonitis [Recovered/Resolved]
  - Productive cough [Unknown]
  - Secretion discharge [Unknown]
  - Sinusitis [Unknown]
  - Skin disorder [Unknown]
  - Sleep disorder due to a general medical condition [Recovered/Resolved]
  - Spirometry abnormal [Unknown]
  - Suprapubic pain [Unknown]
  - Systemic inflammatory response syndrome [Unknown]
  - Underweight [Unknown]
  - Vasculitis [Unknown]
  - Weight decreased [Recovered/Resolved]
  - Wheezing [Recovered/Resolved]
  - Abdominal pain lower [Unknown]
  - Asthma [Unknown]
  - Cough [Unknown]
  - Oropharyngeal pain [Unknown]
  - Dysphonia [Unknown]
  - Therapeutic product effect incomplete [Unknown]
  - Inflammation [Unknown]
  - Blood test abnormal [Unknown]

NARRATIVE: CASE EVENT DATE: 20180901
